FAERS Safety Report 9905892 (Version 1)
Quarter: 2014Q1

REPORT INFORMATION
  Report Type: Spontaneous
  Country: KR (occurrence: KR)
  Receive Date: 20140218
  Receipt Date: 20140218
  Transmission Date: 20141002
  Serious: Yes (Other)
  Sender: FDA-Public Use
  Company Number: KR-PFIZER INC-2014041663

PATIENT
  Sex: Male

DRUGS (2)
  1. SUTENE [Suspect]
     Indication: METASTATIC RENAL CELL CARCINOMA
     Dosage: 50 MG, CONTINUOUSLY
     Route: 048
     Dates: start: 20130708, end: 201401
  2. SUTENE [Suspect]
     Dosage: 37.5 MG, UNK
     Route: 048
     Dates: start: 201401

REACTIONS (5)
  - Pulmonary oedema [Unknown]
  - Disease progression [Unknown]
  - Metastatic renal cell carcinoma [Unknown]
  - Dyspnoea [Unknown]
  - Cardiac valve disease [Unknown]
